FAERS Safety Report 21666768 (Version 1)
Quarter: 2022Q4

REPORT INFORMATION
  Report Type: Spontaneous
  Country: NL (occurrence: NL)
  Receive Date: 20221201
  Receipt Date: 20221201
  Transmission Date: 20230113
  Serious: Yes (Other)
  Sender: FDA-Public Use
  Company Number: NL-LRB-00843609

PATIENT
  Sex: Female
  Weight: 60 kg

DRUGS (2)
  1. SERTRALINE HYDROCHLORIDE [Suspect]
     Active Substance: SERTRALINE HYDROCHLORIDE
     Indication: Anxiety disorder
     Dosage: 150 MILLIGRAM, ONCE A DAY
     Route: 065
     Dates: start: 20220820
  2. SERTRALINE HYDROCHLORIDE [Suspect]
     Active Substance: SERTRALINE HYDROCHLORIDE
     Indication: Autism spectrum disorder

REACTIONS (5)
  - Hallucination, auditory [Unknown]
  - Intentional self-injury [Unknown]
  - Dizziness [Unknown]
  - Delusion [Unknown]
  - Balance disorder [Unknown]
